FAERS Safety Report 25084918 (Version 1)
Quarter: 2025Q1

REPORT INFORMATION
  Report Type: Spontaneous
  Country: US (occurrence: US)
  Receive Date: 20250317
  Receipt Date: 20250317
  Transmission Date: 20250409
  Serious: Yes (Hospitalization, Other)
  Sender: APOTEX
  Company Number: US-APOTEX-2025AP003176

PATIENT
  Age: 76 Year
  Sex: Male

DRUGS (2)
  1. PENTOXIFYLLINE [Suspect]
     Active Substance: PENTOXIFYLLINE
     Indication: Colitis ischaemic
     Route: 065
  2. MESALAMINE [Concomitant]
     Active Substance: MESALAMINE
     Indication: Colitis ischaemic
     Route: 065

REACTIONS (4)
  - Cytomegalovirus infection [Recovering/Resolving]
  - Cytomegalovirus colitis [Recovering/Resolving]
  - Large intestine perforation [Recovering/Resolving]
  - Ulcer [Recovering/Resolving]
